FAERS Safety Report 5761040-3 (Version None)
Quarter: 2008Q2

REPORT INFORMATION
  Report Type: 
  Country: None (occurrence: None)
  Receive Date: 20080606
  Receipt Date: 20071115
  Transmission Date: 20081010
  Serious: No
  Sender: FDA-Public Use
  Company Number: US-ASTRAZENECA-2007UW26542

PATIENT
  Age: 52 Year
  Sex: Female
  Weight: 50.3 kg

DRUGS (5)
  1. PRILOSEC [Suspect]
     Indication: GASTROOESOPHAGEAL REFLUX DISEASE
     Route: 048
     Dates: start: 19890101
  2. NORVASC [Concomitant]
  3. DYAZIDE [Concomitant]
  4. GABAPENTIN [Concomitant]
  5. TIMAZEPAM [Concomitant]

REACTIONS (1)
  - BLOOD GASTRIN INCREASED [None]
